FAERS Safety Report 18567046 (Version 1)
Quarter: 2020Q4

REPORT INFORMATION
  Report Type: Spontaneous
  Country: CZ (occurrence: CZ)
  Receive Date: 20201201
  Receipt Date: 20201201
  Transmission Date: 20210114
  Serious: Yes (Hospitalization)
  Sender: FDA-Public Use
  Company Number: CZ-ASTRAZENECA-2020SF57167

PATIENT
  Age: 81 Year
  Sex: Female

DRUGS (11)
  1. ROSUVASTATIN. [Suspect]
     Active Substance: ROSUVASTATIN
     Route: 048
  2. MICARDIS [Interacting]
     Active Substance: TELMISARTAN
     Indication: HYPERTENSION
     Route: 065
  3. AGEN [Interacting]
     Active Substance: AMLODIPINE BESYLATE
     Indication: TYPE 2 DIABETES MELLITUS
     Route: 048
     Dates: start: 2016
  4. BETAXOLOL. [Concomitant]
     Active Substance: BETAXOLOL
     Dates: start: 2013
  5. ARIMIDEX [Interacting]
     Active Substance: ANASTROZOLE
     Indication: HER2 NEGATIVE BREAST CANCER
     Route: 048
  6. MICARDIS [Interacting]
     Active Substance: TELMISARTAN
     Indication: HYPERTENSION
     Route: 065
  7. GLURENORM [Interacting]
     Active Substance: GLIQUIDONE
     Indication: TYPE 2 DIABETES MELLITUS
     Route: 048
     Dates: start: 2016
  8. MICARDIS PLUS [Concomitant]
     Active Substance: HYDROCHLOROTHIAZIDE\TELMISARTAN
  9. TAMOXIFEN [Interacting]
     Active Substance: TAMOXIFEN
     Indication: HER2 NEGATIVE BREAST CANCER
     Route: 048
  10. METFORMIN [Interacting]
     Active Substance: METFORMIN HYDROCHLORIDE
     Indication: TYPE 2 DIABETES MELLITUS
     Route: 048
  11. RILMENIDINE [Concomitant]
     Active Substance: RILMENIDINE

REACTIONS (2)
  - Drug-induced liver injury [Recovered/Resolved]
  - Drug interaction [Unknown]
